FAERS Safety Report 9044890 (Version 1)
Quarter: 2013Q1

REPORT INFORMATION
  Report Type: Report from Study
  Country: JP (occurrence: JP)
  Receive Date: 20130130
  Receipt Date: 20130130
  Transmission Date: 20140127
  Serious: Yes (Other)
  Sender: FDA-Public Use
  Company Number: JP-GLAXOSMITHKLINE-B0858793A

PATIENT
  Age: 67 None
  Sex: Male

DRUGS (16)
  1. SERETIDE (50MCG/250MCG) [Suspect]
     Indication: ASTHMA
     Dosage: 500MCG TWICE PER DAY
     Route: 055
     Dates: start: 20090113, end: 20090213
  2. SERETIDE (50MCG/250MCG) [Suspect]
     Indication: ASTHMA
     Dosage: 250MCG TWICE PER DAY
     Route: 055
     Dates: start: 20090213, end: 20090706
  3. SERETIDE (50MCG/250MCG) [Suspect]
     Indication: ASTHMA
     Dosage: 500MCG TWICE PER DAY
     Route: 055
     Dates: start: 20090706
  4. ONON [Concomitant]
     Indication: ASTHMA
     Dosage: 112.5MG TWICE PER DAY
     Route: 048
     Dates: start: 20090113
  5. UNIPHYL [Concomitant]
     Indication: ASTHMA
     Route: 048
     Dates: start: 20090113
  6. SPIRIVA [Concomitant]
     Indication: CHRONIC OBSTRUCTIVE PULMONARY DISEASE
     Dosage: 1IUAX PER DAY
     Route: 055
     Dates: start: 20090113
  7. BONALON [Concomitant]
     Indication: OSTEOPOROSIS
     Dosage: 35MG PER DAY
     Route: 048
     Dates: start: 20090113
  8. MUCOSOLVAN [Concomitant]
     Indication: ASTHMA
     Dosage: 15MG THREE TIMES PER DAY
     Route: 048
     Dates: start: 20090113
  9. MUCODYNE [Concomitant]
     Indication: ASTHMA
     Dosage: 500MG THREE TIMES PER DAY
     Route: 048
     Dates: start: 20090113
  10. MYSLEE [Concomitant]
     Indication: INSOMNIA
     Dosage: 10MG PER DAY
     Route: 048
     Dates: start: 20090706
  11. BIOFERMIN [Concomitant]
     Dosage: 1G THREE TIMES PER DAY
     Route: 048
     Dates: start: 20090708
  12. DIOVAN [Concomitant]
     Indication: HYPERTENSION
     Dosage: 40MG PER DAY
     Route: 048
     Dates: start: 20090925
  13. PREDONINE [Concomitant]
     Indication: ASTHMA
     Route: 048
     Dates: start: 20091202
  14. FLUTIDE [Concomitant]
     Dosage: 1IUAX TWICE PER DAY
     Route: 055
     Dates: start: 20091216
  15. SEREVENT [Concomitant]
     Indication: ASTHMA
     Dosage: 1IUAX TWICE PER DAY
     Route: 055
     Dates: start: 20091216
  16. SULTANOL [Concomitant]
     Indication: ASTHMA
     Route: 055
     Dates: start: 20091216

REACTIONS (14)
  - Enterocolitis [Recovered/Resolved]
  - Pneumonia [Recovered/Resolved]
  - Cough [Recovered/Resolved]
  - Pyrexia [Recovered/Resolved]
  - Insomnia [Recovered/Resolved]
  - Chronic obstructive pulmonary disease [Recovered/Resolved]
  - Dyspnoea [Recovered/Resolved]
  - Cough [Recovered/Resolved]
  - Chronic obstructive pulmonary disease [Recovered/Resolved]
  - Dyspnoea [Recovered/Resolved]
  - Cough [Recovered/Resolved]
  - Chronic obstructive pulmonary disease [Recovered/Resolved]
  - Dyspnoea [Recovered/Resolved]
  - Cough [Recovered/Resolved]
